FAERS Safety Report 19887412 (Version 1)
Quarter: 2021Q3

REPORT INFORMATION
  Report Type: Report from Study
  Country: US (occurrence: US)
  Receive Date: 20210928
  Receipt Date: 20210928
  Transmission Date: 20211014
  Serious: Yes (Other)
  Sender: FDA-Public Use
  Company Number: US-BEH-2021136332

PATIENT
  Sex: Male

DRUGS (1)
  1. HIZENTRA [Suspect]
     Active Substance: HUMAN IMMUNOGLOBULIN G
     Dosage: 75 MILLILITER, BIW
     Route: 058
     Dates: start: 20210920, end: 20210923

REACTIONS (8)
  - Pyrexia [Recovered/Resolved]
  - Shock symptom [Recovered/Resolved]
  - Illness [Recovered/Resolved]
  - Headache [Recovered/Resolved]
  - Dysgeusia [Recovered/Resolved]
  - Feeling hot [Recovered/Resolved]
  - Sleep disorder [Unknown]
  - Hangover [Recovered/Resolved]

NARRATIVE: CASE EVENT DATE: 202109
